FAERS Safety Report 7635483-7 (Version None)
Quarter: 2011Q3

REPORT INFORMATION
  Report Type: 
  Country: None (occurrence: None)
  Receive Date: 20110726
  Receipt Date: 20110726
  Transmission Date: 20111222
  Serious: No
  Sender: FDA-Public Use
  Company Number: None

PATIENT
  Age: 33 Year
  Sex: Female
  Weight: 81.646 kg

DRUGS (1)
  1. CIPROFLOXACIN HCL [Suspect]
     Indication: URINARY TRACT INFECTION
     Dosage: 1 PILL
     Route: 048
     Dates: start: 20110201, end: 20110203

REACTIONS (9)
  - MYALGIA [None]
  - NEUROPATHY PERIPHERAL [None]
  - GASTROINTESTINAL DISORDER [None]
  - FALL [None]
  - INSOMNIA [None]
  - ALOPECIA [None]
  - ARTHRALGIA [None]
  - TINNITUS [None]
  - TENDON PAIN [None]
